FAERS Safety Report 10027724 (Version 1)
Quarter: 2014Q1

REPORT INFORMATION
  Report Type: Spontaneous
  Country: US (occurrence: US)
  Receive Date: 20140321
  Receipt Date: 20140321
  Transmission Date: 20141002
  Serious: No
  Sender: FDA-Public Use
  Company Number: US-MALLINCKRODT-T201301690

PATIENT
  Sex: Female

DRUGS (4)
  1. METHADOSE [Suspect]
     Indication: PAIN
     Dosage: 2/DAY
     Dates: start: 2009, end: 2009
  2. PERCOCET /00867901/ [Suspect]
     Indication: FIBROMYALGIA
     Dosage: 2/DAY
     Route: 048
  3. OXYCONTIN [Suspect]
     Indication: FIBROMYALGIA
     Dosage: 10 MG, 2-3/DAY
     Route: 048
  4. ATIVAN [Suspect]
     Indication: ANXIETY
     Dosage: 3 MG, UNK

REACTIONS (2)
  - Abnormal behaviour [Recovered/Resolved]
  - Memory impairment [Recovered/Resolved]
